FAERS Safety Report 8142484-1 (Version None)
Quarter: 2012Q1

REPORT INFORMATION
  Report Type: 
  Country: None (occurrence: None)
  Receive Date: 20120216
  Receipt Date: 20120201
  Transmission Date: 20120608
  Serious: Yes (Other)
  Sender: FDA-Public Use
  Company Number: US-AMGEN-US351606

PATIENT
  Age: 12 Year
  Sex: Female
  Weight: 49 kg

DRUGS (4)
  1. ETANERCEPT [Suspect]
     Indication: JUVENILE ARTHRITIS
     Dosage: 18.8 MG, 2 TIMES/WK
     Route: 058
     Dates: start: 20080801, end: 20081003
  2. LEFLUNOMIDE [Suspect]
     Dosage: 10 MG, UNK
     Route: 065
     Dates: start: 20080910
  3. FOLIC ACID [Concomitant]
     Dosage: UNK UNK, UNK
     Dates: start: 20080623
  4. METHOTREXATE SODIUM [Suspect]
     Indication: JUVENILE ARTHRITIS
     Dosage: 25 MG, QWK
     Route: 048
     Dates: start: 20080623, end: 20080910

REACTIONS (2)
  - MEMORY IMPAIRMENT [None]
  - ATAXIA [None]
